FAERS Safety Report 9298793 (Version 2)
Quarter: 2013Q2

REPORT INFORMATION
  Report Type: Spontaneous
  Country: US (occurrence: US)
  Receive Date: 20130520
  Receipt Date: 20130528
  Transmission Date: 20140414
  Serious: Yes (Other)
  Sender: FDA-Public Use
  Company Number: US-ASTRAZENECA-2012SE71647

PATIENT
  Age: 61 Year
  Sex: Male
  Weight: 74.8 kg

DRUGS (7)
  1. SYMBICORT PMDI [Suspect]
     Indication: ASTHMA
     Dosage: UNKNOWN
     Route: 055
     Dates: start: 201102
  2. SYMBICORT PMDI [Suspect]
     Indication: ASTHMA
     Dosage: 160/4.5 MCG, TWO PUFFS, BID
     Route: 055
  3. SYMBICORT PMDI [Suspect]
     Indication: ASTHMA
     Dosage: 2 PUFFS, TWO TIMES A DAY
     Route: 055
     Dates: start: 2012, end: 20120907
  4. DILTALIZAM [Concomitant]
     Indication: ATRIAL FIBRILLATION
     Route: 048
     Dates: start: 20080206
  5. CLONAZAPAM [Concomitant]
     Indication: ANXIETY
     Dosage: 0.5 MG 1/2 QHS
     Route: 048
     Dates: start: 20080121
  6. CLONAZAPAM [Concomitant]
     Indication: ANXIETY
     Dosage: 0.5 MG, HS
     Route: 048
     Dates: start: 20080121
  7. BUTALBITAL/ ACETAMINOPHEN/CAFFEINE [Concomitant]
     Dosage: DAILY PRN
     Route: 048
     Dates: start: 20080602

REACTIONS (4)
  - Paraesthesia [Recovered/Resolved]
  - Muscular weakness [Recovered/Resolved]
  - Hypokalaemia [Recovered/Resolved]
  - Supraventricular tachycardia [Unknown]
